FAERS Safety Report 23472155 (Version 1)
Quarter: 2024Q1

REPORT INFORMATION
  Report Type: Spontaneous
  Country: US (occurrence: None)
  Receive Date: 20240202
  Receipt Date: 20240202
  Transmission Date: 20240410
  Serious: Yes (Hospitalization, Other)
  Sender: FDA-Public Use
  Company Number: None

PATIENT
  Age: 34 Year
  Sex: Female
  Weight: 63 kg

DRUGS (8)
  1. METHYLPREDNISOLONE [Suspect]
     Active Substance: METHYLPREDNISOLONE
     Indication: Systemic lupus erythematosus
     Dates: start: 202312, end: 20231221
  2. GABAPENTIN [Concomitant]
     Active Substance: GABAPENTIN
  3. HYDROCHLOROTHIAZIDE [Concomitant]
     Active Substance: HYDROCHLOROTHIAZIDE
  4. TRAMADOL [Concomitant]
     Active Substance: TRAMADOL\TRAMADOL HYDROCHLORIDE
  5. KEPPRA [Concomitant]
     Active Substance: LEVETIRACETAM
  6. Stool Softner [Concomitant]
  7. Dulcolax [Concomitant]
  8. MIRALAX [Concomitant]
     Active Substance: POLYETHYLENE GLYCOL 3350

REACTIONS (5)
  - Headache [None]
  - Malaise [None]
  - Migraine [None]
  - Seizure [None]
  - Gait inability [None]

NARRATIVE: CASE EVENT DATE: 20231219
